FAERS Safety Report 11130278 (Version 3)
Quarter: 2015Q2

REPORT INFORMATION
  Report Type: Spontaneous
  Country: FR (occurrence: FR)
  Receive Date: 20150522
  Receipt Date: 20150612
  Transmission Date: 20150821
  Serious: Yes (Life-Threatening, Other)
  Sender: FDA-Public Use
  Company Number: FR-LEO PHARMA-234532

PATIENT
  Age: 80 Year
  Sex: Female
  Weight: 61 kg

DRUGS (3)
  1. HYDROCHLOROTHIAZIDE/AMILORIDE (MODURETIC?) [Concomitant]
     Indication: HYPERTENSION
  2. PICATO [Suspect]
     Active Substance: INGENOL MEBUTATE
     Indication: ACTINIC KERATOSIS
     Dosage: 1 TUBE DAILY
     Route: 061
     Dates: start: 20150131, end: 20150201
  3. IBUPROFEN. [Concomitant]
     Active Substance: IBUPROFEN
     Indication: ARTHRITIS
     Dosage: IF NEEDED

REACTIONS (2)
  - Inappropriate schedule of drug administration [Unknown]
  - Squamous cell carcinoma [Recovering/Resolving]

NARRATIVE: CASE EVENT DATE: 201502
